FAERS Safety Report 6889723-2 (Version None)
Quarter: 2010Q3

REPORT INFORMATION
  Report Type: 
  Country: None (occurrence: None)
  Receive Date: 20100730
  Receipt Date: 20080411
  Transmission Date: 20110219
  Serious: Yes (Other)
  Sender: FDA-Public Use
  Company Number: US-PFIZER INC-2008005544

PATIENT
  Sex: Male
  Weight: 79.8 kg

DRUGS (14)
  1. LIPITOR [Suspect]
     Indication: CORONARY ARTERY DISEASE
     Route: 048
     Dates: start: 20060101
  2. LIPITOR [Suspect]
     Indication: MIXED HYPERLIPIDAEMIA
  3. PROCARDIA [Suspect]
  4. CALCIUM WITH VITAMIN D [Concomitant]
  5. MAGNESIUM OXIDE [Concomitant]
  6. WARFARIN SODIUM [Concomitant]
  7. PARACETAMOL/ CAFFEINE [Concomitant]
  8. METOPROLOL TARTRATE [Concomitant]
  9. ASCORBIC ACID [Concomitant]
  10. HYDROCHLOROTHIAZIDE [Concomitant]
     Dosage: 1`2.5 MG
  11. POTASSIUM CHLORIDE [Concomitant]
  12. SELENIUM [Concomitant]
  13. MAALOX [Concomitant]
  14. RANITIDINE [Concomitant]

REACTIONS (2)
  - AMNESIA [None]
  - MEMORY IMPAIRMENT [None]
